FAERS Safety Report 18780939 (Version 1)
Quarter: 2021Q1

REPORT INFORMATION
  Report Type: Spontaneous
  Country: US (occurrence: US)
  Receive Date: 20210123
  Receipt Date: 20210123
  Transmission Date: 20210419
  Serious: Yes (Hospitalization)
  Sender: FDA-Public Use
  Company Number: None

PATIENT
  Age: 62 Year
  Sex: Female

DRUGS (9)
  1. METHOTREXATE. [Concomitant]
     Active Substance: METHOTREXATE
  2. SULINDAC. [Concomitant]
     Active Substance: SULINDAC
  3. HUMIRA [Suspect]
     Active Substance: ADALIMUMAB
     Indication: RHEUMATOID ARTHRITIS
     Dosage: ?          OTHER FREQUENCY:EVERY 2 WEEKS;?
     Route: 058
     Dates: start: 20200312
  4. FAMOTIDINE. [Concomitant]
     Active Substance: FAMOTIDINE
  5. LEUCOVOR [Concomitant]
  6. SUCRALFATE. [Concomitant]
     Active Substance: SUCRALFATE
  7. GENTLE LAX [Concomitant]
     Active Substance: POLYETHYLENE GLYCOL 3350
  8. BACLOFEN. [Concomitant]
     Active Substance: BACLOFEN
  9. POLYETH GLYC [Concomitant]
     Active Substance: POLYETHYLENE GLYCOLS

REACTIONS (1)
  - Back pain [None]

NARRATIVE: CASE EVENT DATE: 20210116
